FAERS Safety Report 12651505 (Version 1)
Quarter: 2016Q3

REPORT INFORMATION
  Report Type: Spontaneous
  Country: TR (occurrence: TR)
  Receive Date: 20160815
  Receipt Date: 20160815
  Transmission Date: 20161109
  Serious: Yes (Other)
  Sender: FDA-Public Use
  Company Number: TR-TEVA-684492ISR

PATIENT
  Age: 26 Year
  Sex: Female

DRUGS (1)
  1. ISOTRETINOIN [Suspect]
     Active Substance: ISOTRETINOIN
     Dosage: .5 MG/KG DAILY;
     Route: 048

REACTIONS (4)
  - Syncope [Unknown]
  - Heart rate increased [Unknown]
  - Atrial tachycardia [Unknown]
  - Pericardial effusion [Unknown]
